FAERS Safety Report 4725780-7 (Version None)
Quarter: 2005Q3

REPORT INFORMATION
  Report Type: 
  Country: None (occurrence: None)
  Receive Date: 20050725
  Receipt Date: 20050713
  Transmission Date: 20060218
  Serious: Yes (Hospitalization)
  Sender: FDA-Public Use
  Company Number: HQWYE223015JUL05

PATIENT
  Age: 54 Year
  Sex: Female
  Weight: 56.4 kg

DRUGS (16)
  1. RAPAMUNE [Suspect]
     Indication: PROPHYLAXIS AGAINST TRANSPLANT REJECTION
     Dosage: 5 MG 1X PER 1 DAY, ORAL
     Route: 048
     Dates: start: 20050627
  2. MYCOPHENOLATE MOFETIL (MYCOPHENOLATE MOFETIL, ) [Suspect]
     Indication: IMMUNOSUPPRESSANT DRUG THERAPY
     Dosage: 2000 MG 1 X PER 1 DAY
     Dates: start: 20050702, end: 20050711
  3. PREDNISONE [Concomitant]
  4. CLONIDINE [Concomitant]
  5. AMLODIPINE BESYLATE [Concomitant]
  6. LABETALOL HYDROCHLORIDE [Concomitant]
  7. VALGANCICLOVIR (VALGANACICLOVIR) [Concomitant]
  8. GATIFLOXACIN [Concomitant]
  9. BUPRENORPHINE (BUPRENORPHINE) [Concomitant]
  10. ONDANSETRON HCL [Concomitant]
  11. FERROUS SULFATE TAB [Concomitant]
  12. IBERET-FOLIC (FERROUS SULFATE/FOLIC ACID/VITAMINS NOS) [Concomitant]
  13. CLOTRIMAZOLE (CLOTRIMAZOLE) [Concomitant]
  14. PANTROPRAZOLE (PANTROPRAZOLE) [Concomitant]
  15. SULFAMETHOXAZOLE + TRIMETHOPRIM [Concomitant]
  16. DOCUSATE (DOCUSATE) [Concomitant]

REACTIONS (10)
  - AORTIC ATHEROSCLEROSIS [None]
  - BLOOD CREATININE INCREASED [None]
  - NAUSEA [None]
  - POST PROCEDURAL COMPLICATION [None]
  - POST PROCEDURAL HAEMATOMA [None]
  - RENAL ARTERY STENOSIS [None]
  - RENAL TUBULAR NECROSIS [None]
  - SUTURE RELATED COMPLICATION [None]
  - URETERIC OBSTRUCTION [None]
  - VOMITING [None]
